FAERS Safety Report 16522489 (Version 2)
Quarter: 2019Q3

REPORT INFORMATION
  Report Type: Report from Study
  Country: EG (occurrence: EG)
  Receive Date: 20190703
  Receipt Date: 20190808
  Transmission Date: 20191004
  Serious: Yes (Other)
  Sender: FDA-Public Use
  Company Number: EG-ROCHE-2177953

PATIENT
  Age: 37 Year
  Sex: Female
  Weight: 170 kg

DRUGS (8)
  1. TAXOL [Suspect]
     Active Substance: PACLITAXEL
     Indication: BREAST CANCER
     Route: 042
     Dates: start: 20180815
  2. PERJETA [Suspect]
     Active Substance: PERTUZUMAB
     Indication: OFF LABEL USE
  3. PERJETA [Suspect]
     Active Substance: PERTUZUMAB
     Indication: BREAST CANCER
     Dosage: 1 VIAL
     Route: 042
     Dates: start: 20180815
  4. KADCYLA [Suspect]
     Active Substance: ADO-TRASTUZUMAB EMTANSINE
     Indication: BREAST CANCER
     Route: 065
  5. HERCEPTIN [Suspect]
     Active Substance: TRASTUZUMAB
     Indication: OFF LABEL USE
  6. HERCEPTIN [Suspect]
     Active Substance: TRASTUZUMAB
     Indication: BREAST CANCER
     Dosage: 1 VIAL
     Route: 042
     Dates: start: 20180815
  7. KADCYLA [Suspect]
     Active Substance: ADO-TRASTUZUMAB EMTANSINE
     Indication: OFF LABEL USE
  8. TAXOL [Suspect]
     Active Substance: PACLITAXEL
     Indication: OFF LABEL USE
     Route: 042
     Dates: start: 20180815

REACTIONS (5)
  - Feeding disorder [Unknown]
  - Off label use [Unknown]
  - Hepatic neoplasm [Unknown]
  - Disease progression [Not Recovered/Not Resolved]
  - Drug ineffective [Unknown]
